FAERS Safety Report 5056225-8 (Version None)
Quarter: 2006Q3

REPORT INFORMATION
  Report Type: 
  Country: None (occurrence: None)
  Receive Date: 20060717
  Receipt Date: 20060706
  Transmission Date: 20061208
  Serious: Yes (Hospitalization, Other)
  Sender: FDA-Public Use
  Company Number: 2006-01708

PATIENT
  Age: 62 Year
  Sex: Female
  Weight: 55 kg

DRUGS (6)
  1. VELCADE [Suspect]
     Indication: MULTIPLE MYELOMA
  2. FERROFUMARAT (FERROUS FUMARATE) [Concomitant]
  3. CAPOTEN [Concomitant]
  4. DURAGESIC-100 [Concomitant]
  5. DIFLUCAN [Concomitant]
  6. ACETAMINOPHEN [Concomitant]

REACTIONS (1)
  - PANCYTOPENIA [None]
